FAERS Safety Report 9485839 (Version 1)
Quarter: 2013Q3

REPORT INFORMATION
  Report Type: Report from Study
  Country: CA (occurrence: CA)
  Receive Date: 20130829
  Receipt Date: 20130829
  Transmission Date: 20140515
  Serious: Yes (Other)
  Sender: FDA-Public Use
  Company Number: PHHY2013CA093109

PATIENT
  Sex: Male

DRUGS (1)
  1. SANDOSTATIN LAR [Suspect]
     Indication: DIARRHOEA
     Dosage: 30 MG, ONCE A MONTH
     Route: 030
     Dates: start: 20110324

REACTIONS (2)
  - Coronary artery occlusion [Unknown]
  - Blood pressure systolic increased [Unknown]
